FAERS Safety Report 4511660-9 (Version None)
Quarter: 2004Q4

REPORT INFORMATION
  Report Type: 
  Country: None (occurrence: None)
  Receive Date: 20041123
  Receipt Date: 20041123
  Transmission Date: 20050328
  Serious: Yes (Hospitalization)
  Sender: FDA-Public Use
  Company Number: None

PATIENT
  Age: 80 Year
  Sex: Female

DRUGS (8)
  1. RISPERIDONE [Suspect]
  2. FENTANYL [Suspect]
     Indication: PAIN
  3. LEVOTHYROXINE SODIUM [Concomitant]
  4. NITROGLYCERIN [Concomitant]
  5. BENAZEPRIL HCL [Concomitant]
  6. NEPHROCAPS [Concomitant]
  7. ASPIRIN [Concomitant]
  8. CARVEDILOL [Concomitant]

REACTIONS (1)
  - MENTAL STATUS CHANGES [None]
